FAERS Safety Report 8010697-5 (Version None)
Quarter: 2011Q4

REPORT INFORMATION
  Report Type: 
  Country: None (occurrence: None)
  Receive Date: 20111228
  Receipt Date: 20111219
  Transmission Date: 20120403
  Serious: Yes (Other)
  Sender: FDA-Public Use
  Company Number: CA-JNJFOC-20111110204

PATIENT
  Sex: Female
  Weight: 130 kg

DRUGS (2)
  1. REMICADE [Suspect]
     Indication: CROHN'S DISEASE
     Route: 042
     Dates: start: 20100801
  2. CELEBREX [Concomitant]
     Dosage: 2 PILLS EACH DAY
     Route: 048
     Dates: start: 20111201

REACTIONS (2)
  - ARTHRALGIA [None]
  - FISTULA [None]
